FAERS Safety Report 13010131 (Version 3)
Quarter: 2017Q2

REPORT INFORMATION
  Report Type: Report from Study
  Country: US (occurrence: US)
  Receive Date: 20161208
  Receipt Date: 20170522
  Transmission Date: 20170830
  Serious: Yes (Other)
  Sender: FDA-Public Use
  Company Number: US-JNJFOC-20161206239

PATIENT
  Age: 81 Year
  Sex: Male

DRUGS (11)
  1. LISINOPRIL. [Concomitant]
     Active Substance: LISINOPRIL
  2. ZOCOR [Concomitant]
     Active Substance: SIMVASTATIN
  3. IMBRUVICA [Suspect]
     Active Substance: IBRUTINIB
     Indication: WALDENSTROM^S MACROGLOBULINAEMIA
     Route: 048
     Dates: start: 20160819, end: 20161219
  4. TERAZOSIN [Concomitant]
     Active Substance: TERAZOSIN\TERAZOSIN HYDROCHLORIDE
  5. BENDAMUSTINE [Concomitant]
     Active Substance: BENDAMUSTINE
  6. RITUXIMAB [Concomitant]
     Active Substance: RITUXIMAB
  7. METOPROLOL. [Concomitant]
     Active Substance: METOPROLOL
  8. GABAPENTIN. [Concomitant]
     Active Substance: GABAPENTIN
  9. VITAMIN B12 [Concomitant]
     Active Substance: CYANOCOBALAMIN
  10. IRON [Concomitant]
     Active Substance: IRON
  11. WARFARIN [Concomitant]
     Active Substance: WARFARIN

REACTIONS (4)
  - Haemoglobin decreased [Unknown]
  - Haemorrhoids [Recovered/Resolved]
  - Rectal haemorrhage [Recovered/Resolved]
  - Diverticulum [Recovered/Resolved]

NARRATIVE: CASE EVENT DATE: 20161130
